FAERS Safety Report 13575101 (Version 2)
Quarter: 2017Q2

REPORT INFORMATION
  Report Type: Spontaneous
  Country: PT (occurrence: PT)
  Receive Date: 20170523
  Receipt Date: 20170607
  Transmission Date: 20170830
  Serious: Yes (Other)
  Sender: FDA-Public Use
  Company Number: PT-ABBVIE-17K-130-1984225-00

PATIENT
  Age: 67 Year
  Sex: Male

DRUGS (4)
  1. APOCARD [Concomitant]
     Active Substance: FLECAINIDE ACETATE
     Indication: PRODUCT USED FOR UNKNOWN INDICATION
     Route: 048
  2. XARELTO [Concomitant]
     Active Substance: RIVAROXABAN
     Indication: PRODUCT USED FOR UNKNOWN INDICATION
     Route: 048
  3. HUMIRA [Suspect]
     Active Substance: ADALIMUMAB
     Indication: PSORIATIC ARTHROPATHY
     Route: 058
     Dates: start: 20151106, end: 20170427
  4. OMEPRAZOLE. [Concomitant]
     Active Substance: OMEPRAZOLE
     Indication: PRODUCT USED FOR UNKNOWN INDICATION
     Route: 048

REACTIONS (3)
  - Joint stiffness [Unknown]
  - Therapy non-responder [Not Recovered/Not Resolved]
  - Psoriasis [Unknown]
